FAERS Safety Report 7883682-1 (Version None)
Quarter: 2011Q4

REPORT INFORMATION
  Report Type: 
  Country: None (occurrence: None)
  Receive Date: 20111102
  Receipt Date: 20111027
  Transmission Date: 20120403
  Serious: Yes (Life-Threatening, Hospitalization, Other)
  Sender: FDA-Public Use
  Company Number: NO-PFIZER INC-2011263288

PATIENT
  Age: 48 Year
  Sex: Female

DRUGS (3)
  1. IMOVANE [Concomitant]
     Dosage: 7.5 MG, AS NEEDED
  2. EFFEXOR [Suspect]
     Indication: DEPRESSION
     Dosage: 75 MG, 2X/DAY
     Dates: start: 20060201, end: 20101101
  3. OXAZEPAM [Concomitant]
     Dosage: 15 MG, AS NEEDED

REACTIONS (9)
  - COORDINATION ABNORMAL [None]
  - SEPSIS [None]
  - WEIGHT INCREASED [None]
  - PORTAL VEIN THROMBOSIS [None]
  - METRORRHAGIA [None]
  - MULTI-ORGAN FAILURE [None]
  - PANCREATITIS NECROTISING [None]
  - POLYNEUROPATHY [None]
  - VISUAL IMPAIRMENT [None]
